FAERS Safety Report 10372885 (Version 2)
Quarter: 2014Q3

REPORT INFORMATION
  Report Type: Spontaneous
  Country: US (occurrence: US)
  Receive Date: 20140808
  Receipt Date: 20140808
  Transmission Date: 20150326
  Serious: No
  Sender: FDA-Public Use
  Company Number: US-BRISTOL-MYERS SQUIBB COMPANY-19728120

PATIENT
  Age: 77 Year
  Sex: Male
  Weight: 74.83 kg

DRUGS (12)
  1. DRONABINOL. [Concomitant]
     Active Substance: DRONABINOL
     Dosage: CAPS
  2. ATORVASTATIN [Concomitant]
     Active Substance: ATORVASTATIN
     Dosage: TABS
  3. HYDROCODONE, ACETAMINOPHEN [Concomitant]
     Active Substance: ACETAMINOPHEN\HYDROCODONE BITARTRATE
     Dosage: 1DF: 5-500MG
  4. OMEPRAZOLE. [Concomitant]
     Active Substance: OMEPRAZOLE
     Dosage: CAPS
  5. CILOSTAZOL. [Concomitant]
     Active Substance: CILOSTAZOL
     Dosage: TABS
  6. SPRYCEL [Suspect]
     Active Substance: DASATINIB
     Indication: LEUKAEMIA
     Route: 048
     Dates: start: 20130626
  7. AMLODIPINE [Concomitant]
     Active Substance: AMLODIPINE BESYLATE
     Dosage: TABS
  8. CLONIDINE. [Concomitant]
     Active Substance: CLONIDINE
  9. FENTANYL. [Concomitant]
     Active Substance: FENTANYL
     Dosage: DIS
  10. METAMUCIL [Concomitant]
     Active Substance: PLANTAGO SEED
     Dosage: POWDER 30.9%
  11. CLINDAMYCIN [Concomitant]
     Active Substance: CLINDAMYCIN\CLINDAMYCIN PHOSPHATE
     Dosage: CAPS
  12. LYRICA [Concomitant]
     Active Substance: PREGABALIN
     Dosage: CAPS

REACTIONS (6)
  - Abdominal pain [Unknown]
  - Decreased appetite [Unknown]
  - Cold sweat [Unknown]
  - Body temperature decreased [Unknown]
  - Vomiting [Recovered/Resolved]
  - Weight decreased [Not Recovered/Not Resolved]

NARRATIVE: CASE EVENT DATE: 20131015
